FAERS Safety Report 6033251-3 (Version None)
Quarter: 2009Q1

REPORT INFORMATION
  Report Type: 
  Country: None (occurrence: None)
  Receive Date: 20090105
  Receipt Date: 20080501
  Transmission Date: 20090719
  Serious: Yes (Hospitalization)
  Sender: FDA-Public Use
  Company Number: US-000704

PATIENT
  Age: 60 Year
  Sex: Male
  Weight: 81 kg

DRUGS (10)
  1. MULTIHANCE [Suspect]
     Indication: NUCLEAR MAGNETIC RESONANCE IMAGING BRAIN
     Dosage: 17ML QD INTRAVENOUS (NOT OTHERWISE SPECIFIED)
     Route: 042
     Dates: start: 20080430, end: 20080430
  2. MULTIHANCE [Suspect]
     Indication: TREMOR
     Dosage: 17ML QD INTRAVENOUS (NOT OTHERWISE SPECIFIED)
     Route: 042
     Dates: start: 20080430, end: 20080430
  3. VARDENAFIL (VARDENAFIL) [Concomitant]
  4. CLOBETASOL PROPIONATE [Concomitant]
  5. SIMVASTATIN [Concomitant]
  6. TERAZOSIN HCL [Concomitant]
  7. HYDROCHOROTHIAZIDE (HYDROCHOROTHIAZIDE) [Concomitant]
  8. DIAZEPAM [Concomitant]
  9. METOPROLOL (METOPOROLOL) [Concomitant]
  10. ACETAMINOPHEN [Concomitant]

REACTIONS (1)
  - HYPERSENSITIVITY [None]
